FAERS Safety Report 15749520 (Version 1)
Quarter: 2018Q4

REPORT INFORMATION
  Report Type: Report from Study
  Country: GB (occurrence: GB)
  Receive Date: 20181221
  Receipt Date: 20181221
  Transmission Date: 20190205
  Serious: Yes (Other)
  Sender: FDA-Public Use
  Company Number: GB-ACCORD-096727

PATIENT
  Sex: Male

DRUGS (1)
  1. LEVETIRACETAM. [Suspect]
     Active Substance: LEVETIRACETAM
     Indication: PRODUCT USED FOR UNKNOWN INDICATION

REACTIONS (7)
  - Rib fracture [Unknown]
  - Abnormal dreams [Unknown]
  - Adverse drug reaction [Unknown]
  - Seizure [Unknown]
  - Mood altered [Unknown]
  - Upper limb fracture [Unknown]
  - Libido disorder [Unknown]
